FAERS Safety Report 11079479 (Version 2)
Quarter: 2015Q2

REPORT INFORMATION
  Report Type: Spontaneous
  Country: US (occurrence: US)
  Receive Date: 20150430
  Receipt Date: 20150515
  Transmission Date: 20150821
  Serious: No
  Sender: FDA-Public Use
  Company Number: US-GLAXOSMITHKLINE-US2015051608

PATIENT
  Sex: Female

DRUGS (1)
  1. ABREVA [Suspect]
     Active Substance: DOCOSANOL
     Indication: PRODUCT USED FOR UNKNOWN INDICATION
     Dosage: UNK
     Dates: start: 20150405, end: 20150420

REACTIONS (4)
  - Condition aggravated [Not Recovered/Not Resolved]
  - Drug administration error [Unknown]
  - Oral herpes [Not Recovered/Not Resolved]
  - Product quality issue [Unknown]
